FAERS Safety Report 6747551-2 (Version None)
Quarter: 2010Q2

REPORT INFORMATION
  Report Type: 
  Country: None (occurrence: None)
  Receive Date: 20100528
  Receipt Date: 20100526
  Transmission Date: 20101027
  Serious: Yes (Hospitalization, Other)
  Sender: FDA-Public Use
  Company Number: GXKR2010DE05783

PATIENT
  Age: 65 Year
  Sex: Female
  Weight: 64 kg

DRUGS (8)
  1. CLOZAPIN HEXAL (NGX) [Suspect]
     Dosage: 50 MG, QD
     Route: 048
     Dates: start: 20071006, end: 20071006
  2. KALINOR-BRAUSETABLETTEN [Concomitant]
     Dosage: UNK
     Route: 048
     Dates: start: 20071006, end: 20071006
  3. SIMVASTATIN [Concomitant]
     Dosage: 40 MG, QD
     Route: 048
  4. ASPIRIN [Concomitant]
     Dosage: 100 MG, QD
     Route: 048
     Dates: start: 20071007
  5. ZYPREXA [Concomitant]
     Dosage: 2.5 MG, QD
     Route: 048
  6. ZOLOFT [Concomitant]
     Dosage: 50 MG, QD
     Route: 048
     Dates: end: 20071007
  7. ZOLOFT [Concomitant]
     Dosage: 50 MG, QD
     Dates: start: 20071009
  8. ARNICA D6 [Concomitant]

REACTIONS (4)
  - APHASIA [None]
  - BALANCE DISORDER [None]
  - DYSPHEMIA [None]
  - SPEECH DISORDER [None]
